FAERS Safety Report 12341362 (Version 1)
Quarter: 2016Q2

REPORT INFORMATION
  Report Type: Spontaneous
  Country: DK (occurrence: FR)
  Receive Date: 20160506
  Receipt Date: 20160506
  Transmission Date: 20160815
  Serious: Yes (Death, Congenital Anomaly)
  Sender: FDA-Public Use
  Company Number: FR-FRI-1000084377

PATIENT

DRUGS (1)
  1. ESCITALOPRAM [Suspect]
     Active Substance: ESCITALOPRAM OXALATE
     Indication: DEPRESSION
     Route: 064
     Dates: start: 20160116, end: 20160411

REACTIONS (3)
  - Foetal exposure during pregnancy [Fatal]
  - Congenital central nervous system anomaly [Fatal]
  - Microcephaly [Fatal]

NARRATIVE: CASE EVENT DATE: 20160116
